FAERS Safety Report 6907024-0 (Version None)
Quarter: 2010Q3

REPORT INFORMATION
  Report Type: 
  Country: None (occurrence: None)
  Receive Date: 20100804
  Receipt Date: 20080709
  Transmission Date: 20110219
  Serious: Yes (Other)
  Sender: FDA-Public Use
  Company Number: US-PFIZER INC-2008007687

PATIENT
  Age: 21 Year
  Sex: Female
  Weight: 63.9 kg

DRUGS (6)
  1. MARAVIROC [Suspect]
     Indication: HIV INFECTION
     Route: 048
     Dates: start: 20070701
  2. NORVIR [Suspect]
  3. RALTEGRAVIR [Suspect]
  4. TRIZIVIR [Suspect]
  5. TENOFOVIR DISOPROXIL FUMARATE [Suspect]
  6. PREZISTA [Suspect]

REACTIONS (1)
  - LIPODYSTROPHY ACQUIRED [None]
